FAERS Safety Report 7511271-7 (Version None)
Quarter: 2011Q2

REPORT INFORMATION
  Report Type: 
  Country: None (occurrence: None)
  Receive Date: 20110531
  Receipt Date: 20110509
  Transmission Date: 20111010
  Serious: Yes (Hospitalization, Other)
  Sender: FDA-Public Use
  Company Number: US-BAYER-201034769NA

PATIENT
  Sex: Female
  Weight: 126.98 kg

DRUGS (10)
  1. DROSPIRENONE AND ETHINYL ESTRADIOL [Suspect]
     Indication: ORAL CONTRACEPTION
     Dosage: UNK
     Dates: start: 20080101, end: 20090101
  2. TOPAMAX [Concomitant]
     Dosage: UNK
     Route: 048
     Dates: start: 20080101
  3. LOESTRIN 1.5/30 [Concomitant]
     Dosage: UNK
     Route: 048
     Dates: start: 20060101
  4. IBUPROFEN [Concomitant]
     Dosage: 500 MG, UNK
     Route: 048
     Dates: start: 20080701
  5. INDERAL [Concomitant]
     Dosage: UNK
     Route: 048
     Dates: start: 20070101
  6. OXYCODONE HCL [Concomitant]
     Dosage: 30 MG, UNK
     Route: 048
  7. TOPAMAX [Concomitant]
     Dosage: UNK
     Route: 048
     Dates: start: 20050101
  8. PAXIL [Concomitant]
     Dosage: 10 MG, UNK
     Route: 048
  9. YASMIN [Suspect]
     Indication: ORAL CONTRACEPTION
     Dosage: UNK
     Dates: start: 20060101, end: 20080101
  10. YAZ [Suspect]

REACTIONS (4)
  - CHOLECYSTITIS [None]
  - IMPAIRED GASTRIC EMPTYING [None]
  - GALLBLADDER INJURY [None]
  - ABDOMINAL PAIN [None]
